FAERS Safety Report 7760452-6 (Version None)
Quarter: 2011Q3

REPORT INFORMATION
  Report Type: 
  Country: None (occurrence: None)
  Receive Date: 20110919
  Receipt Date: 20110906
  Transmission Date: 20111222
  Serious: Yes (Hospitalization)
  Sender: FDA-Public Use
  Company Number: US-BAYER-201031481NA

PATIENT
  Age: 27 Year
  Sex: Female
  Weight: 97.052 kg

DRUGS (4)
  1. SEASONALE [Concomitant]
     Dosage: 1 TABLET DAILY
     Route: 048
     Dates: start: 20060107, end: 20060808
  2. YASMIN [Suspect]
     Indication: PRODUCT USED FOR UNKNOWN INDICATION
     Dosage: UNK
     Route: 048
     Dates: start: 20060922, end: 20061127
  3. H-C TUSSIVE SYRUP [Concomitant]
     Dosage: 1 TSP AT BEDTIME OR AS NEEDED
     Route: 048
     Dates: start: 20061011, end: 20061125
  4. IBUPROFEN [Concomitant]
     Dosage: 1 TABLET, TID
     Route: 048
     Dates: start: 20060913

REACTIONS (3)
  - DEEP VEIN THROMBOSIS [None]
  - HYPERKALAEMIA [None]
  - HYPOKALAEMIA [None]
